FAERS Safety Report 15709683 (Version 3)
Quarter: 2019Q2

REPORT INFORMATION
  Report Type: Spontaneous
  Country: US (occurrence: US)
  Receive Date: 20181211
  Receipt Date: 20190614
  Transmission Date: 20190711
  Serious: No
  Sender: FDA-Public Use
  Company Number: US-PFIZER INC-2018508505

PATIENT
  Age: 71 Year
  Sex: Female

DRUGS (6)
  1. CODEINE [Suspect]
     Active Substance: CODEINE
     Dosage: UNK
  2. MORPHINE SULFATE. [Suspect]
     Active Substance: MORPHINE SULFATE
     Dosage: UNK
  3. BETADINE [Suspect]
     Active Substance: POVIDONE-IODINE
     Dosage: UNK
  4. CELEBREX [Suspect]
     Active Substance: CELECOXIB
     Dosage: UNK
  5. BACLOFEN. [Suspect]
     Active Substance: BACLOFEN
     Dosage: UNK
  6. IODINE. [Suspect]
     Active Substance: IODINE
     Dosage: UNK

REACTIONS (1)
  - Drug hypersensitivity [Unknown]
